FAERS Safety Report 24334786 (Version 1)
Quarter: 2024Q3

REPORT INFORMATION
  Report Type: Spontaneous
  Country: CN (occurrence: CN)
  Receive Date: 20240918
  Receipt Date: 20240918
  Transmission Date: 20241016
  Serious: Yes (Life-Threatening)
  Sender: PFIZER
  Company Number: CN-PFIZER INC-PV202400120787

PATIENT
  Age: 53 Year
  Sex: Female

DRUGS (3)
  1. PACLITAXEL [Suspect]
     Active Substance: PACLITAXEL
     Indication: Ovarian neoplasm
     Dosage: 30 MG, 1X/DAY
     Route: 041
     Dates: start: 20240822, end: 20240822
  2. PACLITAXEL [Suspect]
     Active Substance: PACLITAXEL
     Dosage: 210 MG, 1X/DAY
     Route: 041
     Dates: start: 20240822, end: 20240822
  3. CARBOPLATIN [Suspect]
     Active Substance: CARBOPLATIN
     Indication: Ovarian neoplasm
     Dosage: 500 MG, 1X/DAY
     Route: 041
     Dates: start: 20240822, end: 20240822

REACTIONS (1)
  - Granulocyte count decreased [Recovered/Resolved]

NARRATIVE: CASE EVENT DATE: 20240903
